FAERS Safety Report 25401471 (Version 1)
Quarter: 2025Q2

REPORT INFORMATION
  Report Type: Spontaneous
  Country: US (occurrence: None)
  Receive Date: 20250604
  Receipt Date: 20250604
  Transmission Date: 20250717
  Serious: Yes (Disabling)
  Sender: FDA-CTU
  Company Number: None

PATIENT
  Age: 65 Year
  Sex: Female
  Weight: 74.25 kg

DRUGS (1)
  1. VILAZODONE HYDROCHLORIDE [Suspect]
     Active Substance: VILAZODONE HYDROCHLORIDE
     Indication: Depression
     Route: 048
     Dates: start: 20231010

REACTIONS (9)
  - Withdrawal syndrome [None]
  - Flat affect [None]
  - Crying [None]
  - Panic reaction [None]
  - Brain fog [None]
  - Depersonalisation/derealisation disorder [None]
  - Fatigue [None]
  - Quality of life decreased [None]
  - Cognitive disorder [None]

NARRATIVE: CASE EVENT DATE: 20250301
